FAERS Safety Report 13625959 (Version 1)
Quarter: 2017Q2

REPORT INFORMATION
  Report Type: Spontaneous
  Country: US (occurrence: US)
  Receive Date: 20170531
  Receipt Date: 20170531
  Transmission Date: 20170830
  Serious: Yes (Hospitalization)
  Sender: FDA-Public Use
  Company Number: US-ASTELLAS-1083025

PATIENT
  Sex: Male
  Weight: 80.72 kg

DRUGS (2)
  1. CARVEDILOL. [Concomitant]
     Active Substance: CARVEDILOL
     Indication: NON-SMALL CELL LUNG CANCER
     Route: 048
  2. TARCEVA [Suspect]
     Active Substance: ERLOTINIB HYDROCHLORIDE
     Indication: PRODUCT USED FOR UNKNOWN INDICATION
     Route: 065

REACTIONS (2)
  - Therapy non-responder [Unknown]
  - Respiratory distress [Unknown]
